FAERS Safety Report 21075804 (Version 1)
Quarter: 2022Q3

REPORT INFORMATION
  Report Type: Spontaneous
  Country: US (occurrence: None)
  Receive Date: 20220712
  Receipt Date: 20220712
  Transmission Date: 20221027
  Serious: Yes (Other)
  Sender: FDA-Public Use
  Company Number: None

PATIENT
  Age: 60 Year
  Sex: Female
  Weight: 123.83 kg

DRUGS (6)
  1. HYDROCHLOROTHIAZIDE [Suspect]
     Active Substance: HYDROCHLOROTHIAZIDE
     Dosage: FREQUENCY : ONCE.;?
     Route: 048
     Dates: start: 20190702, end: 20200715
  2. AMLODIPINE [Suspect]
     Active Substance: AMLODIPINE BESYLATE
     Dosage: FREQUENCY : DAILY;?
     Route: 048
     Dates: start: 20190402, end: 20190412
  3. SPIRONOLACTONE [Concomitant]
     Active Substance: SPIRONOLACTONE
  4. LOSARTON [Concomitant]
  5. LASIX [Concomitant]
     Active Substance: FUROSEMIDE
  6. BYSTOLIC [Concomitant]

REACTIONS (7)
  - Urticaria [None]
  - Fatigue [None]
  - Hypoaesthesia [None]
  - Swelling [None]
  - Dyspnoea [None]
  - Myalgia [None]
  - Tachycardia [None]
